FAERS Safety Report 10046678 (Version 1)
Quarter: 2014Q1

REPORT INFORMATION
  Report Type: Spontaneous
  Country: US (occurrence: US)
  Receive Date: 20140331
  Receipt Date: 20140331
  Transmission Date: 20141002
  Serious: No
  Sender: FDA-Public Use
  Company Number: US-SHIRE-US201400755

PATIENT
  Age: 23 Year
  Sex: Female
  Weight: 56.69 kg

DRUGS (7)
  1. VYVANSE [Suspect]
     Indication: ATTENTION DEFICIT/HYPERACTIVITY DISORDER
     Dosage: 40 MG, 1X/DAY:QD (ON SCHOOL DAYS)
     Route: 048
     Dates: start: 201303
  2. VYVANSE [Suspect]
     Dosage: UNK ( HALF OF A 40 MG CAPSULE) ONE DOSE
     Route: 048
     Dates: start: 20140319, end: 20140319
  3. VYVANSE [Suspect]
     Dosage: 30 MG, 1X/DAY:QD
     Route: 048
     Dates: end: 201303
  4. VITAMIN C                          /00008001/ [Concomitant]
     Indication: ROUTINE HEALTH MAINTENANCE
     Dosage: UNK, 1X/DAY:QD
     Route: 048
     Dates: start: 201401
  5. CALCIUM [Concomitant]
     Indication: ROUTINE HEALTH MAINTENANCE
     Dosage: UNK, 1X/DAY:QD
     Route: 048
     Dates: start: 201401
  6. FISH OIL [Concomitant]
     Indication: ROUTINE HEALTH MAINTENANCE
     Dosage: UNK, 1X/DAY:QD
     Route: 048
     Dates: start: 201401
  7. BIOTIN [Concomitant]
     Indication: ROUTINE HEALTH MAINTENANCE
     Dosage: UNK, 1X/DAY:QD
     Route: 048
     Dates: start: 201401

REACTIONS (4)
  - Drug ineffective [Not Recovered/Not Resolved]
  - Inappropriate schedule of drug administration [Not Recovered/Not Resolved]
  - Incorrect dose administered [Recovered/Resolved]
  - Product quality issue [Unknown]
